FAERS Safety Report 10978264 (Version 1)
Quarter: 2015Q2

REPORT INFORMATION
  Report Type: Spontaneous
  Country: IN (occurrence: IN)
  Receive Date: 20150402
  Receipt Date: 20150402
  Transmission Date: 20150821
  Serious: Yes (Death)
  Sender: FDA-Public Use
  Company Number: IN-MYLANLABS-2015M1010736

PATIENT

DRUGS (3)
  1. ETOPOSIDE. [Suspect]
     Active Substance: ETOPOSIDE
     Indication: ANAPLASTIC LARGE-CELL LYMPHOMA
     Dosage: 600MG DIVIDED OVER 3 DAYS OF THE FIRST CYCLE
     Route: 065
  2. CARBOPLATIN. [Suspect]
     Active Substance: CARBOPLATIN
     Indication: ANAPLASTIC LARGE-CELL LYMPHOMA
     Dosage: 450 MG ON 1ST DAY OF THE FIRST CYCLE
     Route: 065
  3. IFOSFAMIDE. [Suspect]
     Active Substance: IFOSFAMIDE
     Indication: ANAPLASTIC LARGE-CELL LYMPHOMA
     Dosage: 9G DIVIDED OVER 3 DAYS OF THE FIRST CYCLE
     Route: 065

REACTIONS (1)
  - Posterior reversible encephalopathy syndrome [Fatal]
